FAERS Safety Report 23359040 (Version 3)
Quarter: 2024Q1

REPORT INFORMATION
  Report Type: Spontaneous
  Country: US (occurrence: US)
  Receive Date: 20240102
  Receipt Date: 20240202
  Transmission Date: 20240410
  Serious: Yes (Hospitalization, Other)
  Sender: FDA-Public Use
  Company Number: US-PPDUS-2023ST005310

PATIENT
  Age: 72 Year
  Sex: Female

DRUGS (2)
  1. ORSERDU [Suspect]
     Active Substance: ELACESTRANT
     Indication: Product used for unknown indication
     Dosage: 344 MG (4 TABLETS ONE A DAY)
     Route: 048
     Dates: start: 20231117
  2. ORSERDU [Suspect]
     Active Substance: ELACESTRANT
     Dosage: 345 MG, ORAL, ONCE DAILY
     Route: 048
     Dates: start: 20231117

REACTIONS (7)
  - Oesophageal obstruction [Unknown]
  - Pleural effusion [Unknown]
  - Foreign body in throat [Unknown]
  - Product size issue [Unknown]
  - Product use complaint [Unknown]
  - Malaise [Unknown]
  - Asthenia [Unknown]

NARRATIVE: CASE EVENT DATE: 20231204
